FAERS Safety Report 7214502-6 (Version None)
Quarter: 2011Q1

REPORT INFORMATION
  Report Type: 
  Country: None (occurrence: None)
  Receive Date: 20110107
  Receipt Date: 20110103
  Transmission Date: 20110831
  Serious: Yes (Hospitalization)
  Sender: FDA-Public Use
  Company Number: CY-SANOFI-AVENTIS-2011SA000226

PATIENT
  Age: 48 Year
  Sex: Male

DRUGS (2)
  1. AMARYL [Suspect]
     Dosage: 4MG/2MG/4MG TID
     Dates: end: 20110103
  2. MESALAZINE [Concomitant]

REACTIONS (1)
  - COLITIS ULCERATIVE [None]
